FAERS Safety Report 4405880-1 (Version None)
Quarter: 2004Q3

REPORT INFORMATION
  Report Type: 
  Country: None (occurrence: None)
  Receive Date: 20040723
  Receipt Date: 20040130
  Transmission Date: 20050211
  Serious: No
  Sender: FDA-Public Use
  Company Number: US-GLAXOSMITHKLINE-A0495927A

PATIENT
  Age: 57 Year
  Sex: Female

DRUGS (7)
  1. AVANDIA [Suspect]
     Dosage: 8MG PER DAY
     Route: 048
  2. GLUCOVANCE [Concomitant]
  3. DIOVAN [Concomitant]
  4. PAXIL [Concomitant]
  5. AMITRIPTYLINE HCL [Concomitant]
  6. SYNTHROID [Concomitant]
  7. PRAVACHOL [Concomitant]

REACTIONS (4)
  - HYPERHIDROSIS [None]
  - HYPOGLYCAEMIA [None]
  - TREMOR [None]
  - WEIGHT INCREASED [None]
